FAERS Safety Report 8022448-9 (Version None)
Quarter: 2012Q1

REPORT INFORMATION
  Report Type: 
  Country: None (occurrence: None)
  Receive Date: 20120104
  Receipt Date: 20111231
  Transmission Date: 20120608
  Serious: No
  Sender: FDA-Public Use
  Company Number: US-TEVA-315864USA

PATIENT
  Age: 25 Year
  Sex: Female
  Weight: 49.94 kg

DRUGS (1)
  1. PLAN B ONE-STEP [Suspect]
     Indication: POST COITAL CONTRACEPTION
     Dosage: 1.5 MILLIGRAM;
     Route: 048
     Dates: start: 20111223, end: 20111223

REACTIONS (4)
  - VULVOVAGINAL BURNING SENSATION [None]
  - OROPHARYNGEAL PAIN [None]
  - FUNGAL INFECTION [None]
  - VULVOVAGINAL PRURITUS [None]
